FAERS Safety Report 22197853 (Version 3)
Quarter: 2025Q3

REPORT INFORMATION
  Report Type: Spontaneous
  Country: US (occurrence: US)
  Receive Date: 20230411
  Receipt Date: 20250813
  Transmission Date: 20251020
  Serious: Yes (Hospitalization, Other)
  Sender: PFIZER
  Company Number: US-PFIZER INC-PV202300064890

PATIENT
  Age: 43 Year
  Sex: Female

DRUGS (5)
  1. SIROLIMUS [Suspect]
     Active Substance: SIROLIMUS
     Indication: Lupus nephritis
     Dosage: 1 MG, DAILY
  2. SIROLIMUS [Suspect]
     Active Substance: SIROLIMUS
     Indication: Antiphospholipid syndrome
  3. HYDROXYCHLOROQUINE [Suspect]
     Active Substance: HYDROXYCHLOROQUINE
     Indication: Lupus nephritis
     Dosage: 200 MG, 1X/DAY
  4. MYCOPHENOLATE MOFETIL [Suspect]
     Active Substance: MYCOPHENOLATE MOFETIL
     Indication: Lupus nephritis
     Dosage: 360 MG, 2X/DAY
  5. COUMADIN [Concomitant]
     Active Substance: WARFARIN SODIUM
     Indication: Cerebrovascular accident
     Dosage: 2.5 MG, DAILY

REACTIONS (4)
  - Acute kidney injury [Recovering/Resolving]
  - Dehydration [Recovering/Resolving]
  - Gastroenteritis viral [Recovering/Resolving]
  - Off label use [Unknown]

NARRATIVE: CASE EVENT DATE: 20220101
